FAERS Safety Report 22173353 (Version 1)
Quarter: 2023Q2

REPORT INFORMATION
  Report Type: Spontaneous
  Country: US (occurrence: US)
  Receive Date: 20230404
  Receipt Date: 20230404
  Transmission Date: 20230722
  Serious: No
  Sender: FDA-Public Use
  Company Number: US-TEVA-2023-US-2868992

PATIENT
  Sex: Female

DRUGS (1)
  1. AJOVY [Suspect]
     Active Substance: FREMANEZUMAB-VFRM
     Indication: Product used for unknown indication
     Route: 065

REACTIONS (5)
  - Surgery [Unknown]
  - Malaise [Unknown]
  - Wrong technique in product usage process [Unknown]
  - Product dose omission in error [Unknown]
  - Accidental exposure to product [Unknown]
